FAERS Safety Report 8305575-8 (Version None)
Quarter: 2012Q2

REPORT INFORMATION
  Report Type: 
  Country: None (occurrence: None)
  Receive Date: 20120423
  Receipt Date: 20120412
  Transmission Date: 20120825
  Serious: Yes (Hospitalization)
  Sender: FDA-Public Use
  Company Number: JP-ELI_LILLY_AND_COMPANY-JP201204000486

PATIENT
  Age: 85 Year
  Sex: Female

DRUGS (2)
  1. FORTEO [Suspect]
     Dosage: UNK
     Route: 058
     Dates: end: 20120318
  2. FORTEO [Suspect]
     Dosage: UNK
     Route: 058
     Dates: start: 20120411

REACTIONS (1)
  - DIVERTICULUM INTESTINAL HAEMORRHAGIC [None]
